FAERS Safety Report 16283823 (Version 3)
Quarter: 2019Q2

REPORT INFORMATION
  Report Type: Spontaneous
  Country: CA (occurrence: CA)
  Receive Date: 20190507
  Receipt Date: 20190621
  Transmission Date: 20190711
  Serious: Yes (Hospitalization)
  Sender: FDA-Public Use
  Company Number: CA-PFIZER INC-2019181316

PATIENT
  Age: 36 Year
  Sex: Female

DRUGS (1)
  1. XELJANZ [Suspect]
     Active Substance: TOFACITINIB CITRATE
     Indication: COLITIS ULCERATIVE
     Dosage: 10 MG BID ( 2X/DAY)
     Route: 048
     Dates: start: 20190423, end: 20190505

REACTIONS (10)
  - Gait disturbance [Unknown]
  - Asthenia [Unknown]
  - Oral disorder [Unknown]
  - Mobility decreased [Unknown]
  - Haematochezia [Unknown]
  - Abdominal discomfort [Unknown]
  - Pyrexia [Unknown]
  - Colitis ulcerative [Unknown]
  - Weight decreased [Unknown]
  - Product dose omission [Unknown]

NARRATIVE: CASE EVENT DATE: 20190423
